FAERS Safety Report 7631467-3 (Version None)
Quarter: 2011Q3

REPORT INFORMATION
  Report Type: 
  Country: None (occurrence: None)
  Receive Date: 20110725
  Receipt Date: 20110719
  Transmission Date: 20111222
  Serious: Yes (Death, Other)
  Sender: FDA-Public Use
  Company Number: PHHY2011US64917

PATIENT
  Sex: Female

DRUGS (9)
  1. DOXORUBICIN HCL [Concomitant]
     Dosage: 25 MG/M2, UNK
  2. TACROLIMUS [Concomitant]
     Indication: PROPHYLAXIS
     Dosage: UNK
  3. DOXORUBICIN HCL [Concomitant]
     Dosage: 16 MG/M2, UNK
     Dates: end: 19910301
  4. METHOTREXATE [Suspect]
     Dosage: UNK
     Dates: end: 19910301
  5. IFOSFAMIDE [Suspect]
     Dosage: 1100 MG/M2, UNK
     Dates: end: 19910301
  6. ETOPOSIDE [Suspect]
     Dosage: 100 MG/M2, UNK
  7. THALIDOMIDE [Concomitant]
     Dosage: UNK
     Dates: start: 20060101, end: 20060401
  8. IFOSFAMIDE [Suspect]
     Dosage: 1800 MG/M2, UNK
  9. IFOSFAMIDE [Suspect]
     Dosage: 1800 MG/M2, UNK

REACTIONS (12)
  - MYELODYSPLASTIC SYNDROME TRANSFORMATION [None]
  - MUCOSAL INFLAMMATION [None]
  - THROMBOCYTOPENIA [None]
  - NERVE INJURY [None]
  - OSTEOSARCOMA RECURRENT [None]
  - MARROW HYPERPLASIA [None]
  - DEATH [None]
  - BONE MARROW DISORDER [None]
  - MYELODYSPLASTIC SYNDROME [None]
  - OSTEOSCLEROSIS [None]
  - ANAEMIA [None]
  - TUMOUR NECROSIS [None]
